FAERS Safety Report 18755104 (Version 1)
Quarter: 2021Q1

REPORT INFORMATION
  Report Type: Spontaneous
  Country: US (occurrence: US)
  Receive Date: 20210115
  Receipt Date: 20210115
  Transmission Date: 20210419
  Serious: Yes (Hospitalization)
  Sender: FDA-Public Use
  Company Number: None

PATIENT
  Sex: Female

DRUGS (6)
  1. ESBRIET [Suspect]
     Active Substance: PIRFENIDONE
     Indication: IDIOPATHIC PULMONARY FIBROSIS
     Dosage: ?          OTHER DOSE:1 TAB;?
     Route: 048
     Dates: start: 20190720
  2. LASIX [Concomitant]
     Active Substance: FUROSEMIDE
  3. SILDENAFIL. [Concomitant]
     Active Substance: SILDENAFIL
  4. METOLAZONE. [Concomitant]
     Active Substance: METOLAZONE
  5. ASPIRIN. [Concomitant]
     Active Substance: ASPIRIN
  6. METOPROL TAR [Concomitant]

REACTIONS (4)
  - Intentional dose omission [None]
  - Pneumonia [None]
  - Atrial fibrillation [None]
  - Dyspnoea [None]
